FAERS Safety Report 19777458 (Version 3)
Quarter: 2022Q1

REPORT INFORMATION
  Report Type: Spontaneous
  Country: IT (occurrence: IT)
  Receive Date: 20210902
  Receipt Date: 20220214
  Transmission Date: 20220423
  Serious: Yes (Hospitalization, Other)
  Sender: FDA-Public Use
  Company Number: IT-EMA-DD-20210312-ZAVIOUR_N-112527

PATIENT
  Age: 25 Year
  Sex: Male

DRUGS (25)
  1. ETORICOXIB [Suspect]
     Active Substance: ETORICOXIB
     Indication: Postoperative analgesia
     Dosage: UNK
     Route: 065
     Dates: start: 2018
  2. ETORICOXIB [Suspect]
     Active Substance: ETORICOXIB
     Indication: Pain
     Dosage: UNK
     Route: 065
     Dates: start: 201811
  3. ACETAMINOPHEN [Suspect]
     Active Substance: ACETAMINOPHEN
     Indication: Postoperative analgesia
     Dosage: UNK
     Route: 065
     Dates: start: 201806
  4. ACETAMINOPHEN [Suspect]
     Active Substance: ACETAMINOPHEN
     Indication: Pain
  5. PREGABALIN [Suspect]
     Active Substance: PREGABALIN
     Indication: Pain
     Dosage: 900 MILLIGRAM, ONCE A DAY(900 MG, PER DAY)
     Route: 048
  6. PREGABALIN [Suspect]
     Active Substance: PREGABALIN
     Dosage: 1500 MILLIGRAM, ONCE A DAY
     Route: 065
  7. PREGABALIN [Suspect]
     Active Substance: PREGABALIN
     Dosage: 300 MILLIGRAM, ONCE A DAY
     Route: 065
  8. PREGABALIN [Suspect]
     Active Substance: PREGABALIN
     Dosage: 25 MILLIGRAM, ONCE A DAY (REDUCING THE PREGABALIN DOSE BY ABOUT 25 MG/DAY)
     Route: 065
  9. PREGABALIN [Suspect]
     Active Substance: PREGABALIN
     Dosage: 75 MILLIGRAM, ONCE A DAY 75 MG, QD
     Route: 065
  10. PREGABALIN [Suspect]
     Active Substance: PREGABALIN
     Dosage: 50 MILLIGRAM, ONCE A DAY (ADDITIONAL LOW DOSAGES OF PREGABALIN (25-50 MG/DAY) )
     Route: 065
  11. PREGABALIN [Suspect]
     Active Substance: PREGABALIN
     Dosage: 3000 MILLIGRAM, ONCE A DAY
     Route: 048
     Dates: start: 201807, end: 201901
  12. METHADONE [Suspect]
     Active Substance: METHADONE HYDROCHLORIDE
     Indication: Postoperative analgesia
     Dosage: 30 MILLIGRAM, ONCE A DAY(30 MG, QD)
     Route: 065
  13. METHADONE [Suspect]
     Active Substance: METHADONE HYDROCHLORIDE
     Indication: Drug use disorder
     Dosage: 5 MILLIGRAM, ONCE A DAY(5 MG, QD, IN THE MORNING)
     Route: 048
     Dates: start: 2019
  14. ACETAMINOPHEN [Suspect]
     Active Substance: ACETAMINOPHEN
     Indication: Postoperative analgesia
     Dosage: UNK
     Route: 065
     Dates: start: 2018
  15. ACETAMINOPHEN [Suspect]
     Active Substance: ACETAMINOPHEN
     Indication: Pain
     Dosage: UNK
     Route: 065
     Dates: start: 201811
  16. ACETAMINOPHEN [Suspect]
     Active Substance: ACETAMINOPHEN
     Dosage: UNK
     Route: 065
     Dates: start: 201806
  17. CANNABIS SATIVA SUBSP. INDICA TOP [Suspect]
     Active Substance: CANNABIS SATIVA SUBSP. INDICA TOP
     Indication: Product used for unknown indication
     Dosage: 12 GRAM, ONCE A DAY (1-2 G/DAY )
     Route: 065
  18. ADEMETIONINE [Concomitant]
     Active Substance: ADEMETIONINE
     Indication: Postoperative analgesia
     Dosage: UNK
     Route: 065
     Dates: start: 201811
  19. ADEMETIONINE [Concomitant]
     Active Substance: ADEMETIONINE
     Indication: Pain
  20. ACETAMINOPHEN [Concomitant]
     Active Substance: ACETAMINOPHEN
     Indication: Postoperative analgesia
     Dosage: UNK
     Route: 065
     Dates: start: 2018
  21. ACETAMINOPHEN [Concomitant]
     Active Substance: ACETAMINOPHEN
     Indication: Pain
     Dosage: UNK
     Route: 065
     Dates: start: 201811
  22. ETORICOXIB [Concomitant]
     Active Substance: ETORICOXIB
     Indication: Pain
     Dosage: UNK
     Route: 065
     Dates: start: 2018
  23. ETORICOXIB [Concomitant]
     Active Substance: ETORICOXIB
     Indication: Postoperative analgesia
  24. METHADONE [Concomitant]
     Active Substance: METHADONE HYDROCHLORIDE
     Indication: Postoperative analgesia
     Dosage: 30 MILLIGRAM, ONCE A DAY
     Route: 065
  25. METHADONE [Concomitant]
     Active Substance: METHADONE HYDROCHLORIDE
     Dosage: 5 MILLIGRAM, ONCE A DAY(5 MG, QD, IN THE MORNING )
     Route: 048
     Dates: start: 2019

REACTIONS (40)
  - Dizziness [Recovered/Resolved]
  - Agitation [Recovered/Resolved]
  - Nausea [Recovered/Resolved]
  - Influenza like illness [Recovered/Resolved]
  - Nervousness [Recovered/Resolved]
  - Drug abuse [Recovered/Resolved]
  - Euphoric mood [Recovered/Resolved]
  - Dysphoria [Recovered/Resolved]
  - Insomnia [Recovered/Resolved]
  - Palpitations [Recovered/Resolved]
  - Depersonalisation/derealisation disorder [Recovered/Resolved]
  - Derealisation [Recovered/Resolved]
  - Disturbance in attention [Recovered/Resolved]
  - Drug ineffective [Unknown]
  - Withdrawal syndrome [Recovered/Resolved]
  - Back pain [Recovered/Resolved]
  - Fatigue [Recovered/Resolved]
  - Myalgia [Recovered/Resolved]
  - Tachycardia [Recovered/Resolved]
  - Visual impairment [Recovered/Resolved]
  - Photophobia [Recovered/Resolved]
  - Irritability [Recovered/Resolved]
  - Dyspnoea [Recovered/Resolved]
  - Mood swings [Recovered/Resolved]
  - Eye pain [Recovered/Resolved]
  - Headache [Recovered/Resolved]
  - Confusional state [Recovered/Resolved]
  - Phonophobia [Recovered/Resolved]
  - Dissociative disorder [Recovered/Resolved]
  - Drug use disorder [Unknown]
  - Intentional overdose [Recovered/Resolved]
  - Intentional product use issue [Recovered/Resolved]
  - Panic attack [Unknown]
  - Decreased appetite [Recovering/Resolving]
  - Constipation [Recovering/Resolving]
  - Anxiety [Unknown]
  - Hyperphagia [Recovered/Resolved]
  - Off label use [Unknown]
  - Tension [Recovered/Resolved]
  - Delayed sleep phase [Recovered/Resolved]

NARRATIVE: CASE EVENT DATE: 20180101
